FAERS Safety Report 4822787-6 (Version None)
Quarter: 2005Q4

REPORT INFORMATION
  Report Type: 
  Country: None (occurrence: None)
  Receive Date: 20051104
  Receipt Date: 20051019
  Transmission Date: 20060501
  Serious: Yes (Hospitalization)
  Sender: FDA-Public Use
  Company Number: DSA_27336_2005

PATIENT
  Age: 70 Year
  Sex: Male

DRUGS (5)
  1. DILTIAZEM HCL [Suspect]
     Dosage: DF Q DAY PO
     Route: 048
  2. ATENOLOL [Suspect]
     Indication: HYPERTENSION
     Dosage: DF Q DAY PO
     Route: 048
     Dates: start: 19990903, end: 20021028
  3. MOXONIDINE [Concomitant]
  4. ACETAMINOPHEN [Concomitant]
  5. BENDROFLUMETHIAZIDE [Suspect]
     Indication: HYPERTENSION
     Dosage: 1.25 MG Q DAY PO
     Route: 048
     Dates: start: 20020402, end: 20051010

REACTIONS (2)
  - BRADYCARDIA [None]
  - CIRCULATORY COLLAPSE [None]
